FAERS Safety Report 19482990 (Version 3)
Quarter: 2021Q3

REPORT INFORMATION
  Report Type: Spontaneous
  Country: US (occurrence: US)
  Receive Date: 20210701
  Receipt Date: 20210714
  Transmission Date: 20211014
  Serious: No
  Sender: FDA-Public Use
  Company Number: US-SA-2021SA212043

PATIENT
  Age: 64 Year
  Sex: Male

DRUGS (1)
  1. TOUJEO [Suspect]
     Active Substance: INSULIN GLARGINE
     Indication: TYPE 2 DIABETES MELLITUS
     Dosage: 60 UNITS  ONCE DAILY
     Route: 065
     Dates: start: 202105

REACTIONS (3)
  - Blood glucose increased [Unknown]
  - Drug dose omission by device [Unknown]
  - Device operational issue [Unknown]

NARRATIVE: CASE EVENT DATE: 2021
